FAERS Safety Report 4506446-5 (Version None)
Quarter: 2004Q4

REPORT INFORMATION
  Report Type: 
  Country: None (occurrence: None)
  Receive Date: 20041117
  Receipt Date: 20041104
  Transmission Date: 20050328
  Serious: Yes (Other)
  Sender: FDA-Public Use
  Company Number: 2004238349US

PATIENT
  Age: 74 Year
  Sex: Female
  Weight: 58.96 kg

DRUGS (1)
  1. BEXTRA [Suspect]
     Indication: OSTEOARTHRITIS
     Dosage: (ONE HALF TABLET DAILY)
     Dates: start: 20041012, end: 20041001

REACTIONS (5)
  - CONDITION AGGRAVATED [None]
  - NAUSEA [None]
  - OEDEMA PERIPHERAL [None]
  - PAIN IN EXTREMITY [None]
  - VOMITING [None]
